FAERS Safety Report 22363710 (Version 1)
Quarter: 2023Q2

REPORT INFORMATION
  Report Type: Spontaneous
  Country: JP (occurrence: JP)
  Receive Date: 20230525
  Receipt Date: 20230525
  Transmission Date: 20230722
  Serious: Yes (Other)
  Sender: FDA-Public Use
  Company Number: JP-ONO-2023JP008236

PATIENT
  Age: 8 Decade

DRUGS (5)
  1. KYPROLIS [Suspect]
     Active Substance: CARFILZOMIB
     Indication: Plasma cell myeloma
     Dosage: 20 MG/M2
     Route: 041
     Dates: start: 202303, end: 202303
  2. KYPROLIS [Suspect]
     Active Substance: CARFILZOMIB
     Dosage: 20 MG/M2
     Route: 065
  3. KYPROLIS [Suspect]
     Active Substance: CARFILZOMIB
     Dosage: 56 MG/M2
     Route: 065
  4. DEXAMETHASONE [Concomitant]
     Active Substance: DEXAMETHASONE
     Indication: Plasma cell myeloma
     Dosage: UNK
     Route: 065
     Dates: start: 202303, end: 202303
  5. DEXAMETHASONE [Concomitant]
     Active Substance: DEXAMETHASONE
     Dosage: UNK

REACTIONS (5)
  - Myelosuppression [Recovered/Resolved]
  - Renal impairment [Unknown]
  - Tumour lysis syndrome [Recovered/Resolved]
  - Blood phosphorus increased [Unknown]
  - Blood potassium increased [Recovered/Resolved]

NARRATIVE: CASE EVENT DATE: 20230301
